FAERS Safety Report 13297125 (Version 1)
Quarter: 2017Q1

REPORT INFORMATION
  Report Type: Spontaneous
  Country: US (occurrence: US)
  Receive Date: 20170303
  Receipt Date: 20170303
  Transmission Date: 20170428
  Serious: No
  Sender: FDA-Public Use
  Company Number: None

PATIENT
  Sex: Female

DRUGS (1)
  1. IBRANCE [Suspect]
     Active Substance: PALBOCICLIB
     Indication: NEOPLASM MALIGNANT
     Dosage: 125 MG DAILY FOR 21 DAYS, OFF OR 7 DAYS, BY MOUTH
     Route: 048
     Dates: start: 201604, end: 201701

REACTIONS (1)
  - Disease progression [None]
